FAERS Safety Report 23202049 (Version 3)
Quarter: 2023Q4

REPORT INFORMATION
  Report Type: Spontaneous
  Country: JP (occurrence: JP)
  Receive Date: 20231120
  Receipt Date: 20231205
  Transmission Date: 20240109
  Serious: Yes (Other)
  Sender: FDA-Public Use
  Company Number: JP-SAKK-2023SA352637AA

PATIENT
  Age: 25 Year
  Sex: Male

DRUGS (5)
  1. DUPIXENT [Suspect]
     Active Substance: DUPILUMAB
     Indication: Dermatitis atopic
     Dosage: UNK
     Route: 058
  2. DUPIXENT [Suspect]
     Active Substance: DUPILUMAB
     Dosage: UNK, QM
     Route: 058
  3. DUPIXENT [Suspect]
     Active Substance: DUPILUMAB
     Dosage: UNK
     Route: 058
  4. DUPIXENT [Suspect]
     Active Substance: DUPILUMAB
     Dosage: UNK
     Route: 058
  5. IXEKIZUMAB [Concomitant]
     Active Substance: IXEKIZUMAB
     Indication: Psoriasis
     Route: 065

REACTIONS (6)
  - Psoriatic arthropathy [Recovering/Resolving]
  - Arthralgia [Recovering/Resolving]
  - Dermatitis psoriasiform [Unknown]
  - Hyperkeratosis [Unknown]
  - Erythema [Unknown]
  - Inappropriate schedule of product administration [Unknown]
